FAERS Safety Report 15362493 (Version 3)
Quarter: 2018Q4

REPORT INFORMATION
  Report Type: Not Available
  Country: US (occurrence: US)
  Receive Date: 20180907
  Receipt Date: 20181010
  Transmission Date: 20190204
  Serious: Yes (Hospitalization)
  Sender: FDA-Public Use
  Company Number: US-NEUROCRINE BIOSCIENCES INC.-2018NBI02650

PATIENT
  Sex: Female

DRUGS (17)
  1. VENLAFAXINE HYDROCHLORIDE. [Concomitant]
     Active Substance: VENLAFAXINE HYDROCHLORIDE
  2. THIOTHIXENE. [Concomitant]
     Active Substance: THIOTHIXENE
  3. FISH OIL BURP LESS [Concomitant]
  4. TRIHEXYPHENIDYL HYDROCHLORIDE. [Concomitant]
     Active Substance: TRIHEXYPHENIDYL HYDROCHLORIDE
  5. CALCIUM 600 [Concomitant]
  6. INGREZZA [Suspect]
     Active Substance: VALBENAZINE
     Indication: TARDIVE DYSKINESIA
     Route: 048
     Dates: start: 20171013, end: 20171020
  7. INGREZZA [Suspect]
     Active Substance: VALBENAZINE
     Route: 048
     Dates: start: 20171021, end: 20180820
  8. FENOFIBRATE. [Concomitant]
     Active Substance: FENOFIBRATE
  9. GABAPENTIN. [Concomitant]
     Active Substance: GABAPENTIN
  10. METFORMIN HYDROCHLORIDE. [Concomitant]
     Active Substance: METFORMIN HYDROCHLORIDE
  11. NAPROXEN. [Concomitant]
     Active Substance: NAPROXEN
  12. LORAZEPAM. [Concomitant]
     Active Substance: LORAZEPAM
  13. ATORVASTATIN CALCIUM. [Concomitant]
     Active Substance: ATORVASTATIN CALCIUM
  14. SEROQUEL XR [Concomitant]
     Active Substance: QUETIAPINE FUMARATE
  15. PRAMIPEXOLE DIHYDROCHLORIDE. [Concomitant]
     Active Substance: PRAMIPEXOLE DIHYDROCHLORIDE
  16. SENNOSIDES. [Concomitant]
     Active Substance: SENNOSIDES
  17. TRAZODONE HYDROCHLORIDE. [Concomitant]
     Active Substance: TRAZODONE HYDROCHLORIDE

REACTIONS (4)
  - Dysphagia [Recovered/Resolved]
  - Depression suicidal [Unknown]
  - Salivary hypersecretion [Recovered/Resolved]
  - Choking [Recovered/Resolved]
